FAERS Safety Report 16798290 (Version 1)
Quarter: 2019Q4

REPORT INFORMATION
  Report Type: Spontaneous
  Country: US (occurrence: US)
  Receive Date: 20190911
  Receipt Date: 20190911
  Transmission Date: 20200122
  Serious: No
  Sender: FDA-Public Use
  Company Number: None

PATIENT
  Age: 47 Year
  Sex: Female

DRUGS (1)
  1. AIMOVIG [Suspect]
     Active Substance: ERENUMAB-AOOE
     Indication: MIGRAINE
     Dosage: ?          OTHER FREQUENCY:ONCE PER MONTH;?
     Route: 058
     Dates: start: 20190822, end: 20190911

REACTIONS (5)
  - Muscle spasms [None]
  - Swelling [None]
  - Pain in extremity [None]
  - Gait disturbance [None]
  - Muscle spasticity [None]

NARRATIVE: CASE EVENT DATE: 20190904
